FAERS Safety Report 5827174-X (Version None)
Quarter: 2008Q3

REPORT INFORMATION
  Report Type: 
  Country: None (occurrence: None)
  Receive Date: 20080725
  Receipt Date: 20080714
  Transmission Date: 20090109
  Serious: Yes (Other)
  Sender: FDA-Public Use
  Company Number: 08-001114

PATIENT
  Age: 1 Day
  Sex: Male
  Weight: 1.5 kg

DRUGS (9)
  1. TACLONEX [Suspect]
     Dosage: TRANSPLACENTAL
     Route: 064
     Dates: start: 20020601, end: 20071230
  2. ABIDEC (ASCORBIC ACID, ERGOCALCIFROL, NICOTINAMIDE, RETINOL, RIBOFLAVI [Suspect]
     Indication: VITAMIN SUPPLEMENTATION
     Dosage: 0.6 ML, ORAL
     Route: 048
  3. SANDOZ [Concomitant]
  4. PHOSPHATE-SANDOZ /00504001/ (POTASSIUM BICARBONATE, SODIUM BICARBONATE [Concomitant]
  5. CEFOTAXIME SODIUM [Concomitant]
  6. TRAMADOL HCL [Concomitant]
  7. CODEINE SUL TAB [Concomitant]
  8. LABETALOL HCL [Concomitant]
  9. PREDNISONE [Concomitant]

REACTIONS (8)
  - CONVULSION NEONATAL [None]
  - DRUG EXPOSURE VIA BREAST MILK [None]
  - GROWTH RETARDATION [None]
  - HYPERCALCAEMIA [None]
  - INFANTILE APNOEIC ATTACK [None]
  - NEONATAL DISORDER [None]
  - PREMATURE BABY [None]
  - SEPSIS NEONATAL [None]
